FAERS Safety Report 22540995 (Version 7)
Quarter: 2023Q4

REPORT INFORMATION
  Report Type: Spontaneous
  Country: US (occurrence: US)
  Receive Date: 20230609
  Receipt Date: 20231218
  Transmission Date: 20240110
  Serious: Yes (Other)
  Sender: FDA-Public Use
  Company Number: US-PFIZER INC-PV202300101351

PATIENT
  Age: 82 Year
  Sex: Female
  Weight: 41.3 kg

DRUGS (5)
  1. IBRANCE [Suspect]
     Active Substance: PALBOCICLIB
     Indication: Breast cancer metastatic
     Dosage: 125 MG, DAILY ON 1-21, EVERY 28 DAYS
     Route: 048
     Dates: start: 202305
  2. IBRANCE [Suspect]
     Active Substance: PALBOCICLIB
     Indication: Hormone receptor positive breast cancer
     Dosage: 100 MG, DAILY,  ON 1-21, EVERY 28 DAYS
     Route: 048
     Dates: start: 20230728
  3. IBRANCE [Suspect]
     Active Substance: PALBOCICLIB
     Indication: Neutropenia
  4. FASLODEX [Concomitant]
     Active Substance: FULVESTRANT
     Dosage: UNK
     Dates: start: 202305
  5. ANASTROZOLE [Concomitant]
     Active Substance: ANASTROZOLE
     Dosage: UNK
     Dates: start: 201503, end: 201903

REACTIONS (7)
  - Neutropenia [Unknown]
  - Appetite disorder [Recovering/Resolving]
  - Constipation [Recovered/Resolved]
  - Dyspnoea [Unknown]
  - Fatigue [Recovering/Resolving]
  - Musculoskeletal chest pain [Recovered/Resolved]
  - Nausea [Unknown]
